FAERS Safety Report 7909190-7 (Version None)
Quarter: 2011Q4

REPORT INFORMATION
  Report Type: 
  Country: None (occurrence: None)
  Receive Date: 20111111
  Receipt Date: 20110706
  Transmission Date: 20120403
  Serious: No
  Sender: FDA-Public Use
  Company Number: US-GLAXOSMITHKLINE-A0935144A

PATIENT
  Age: 63 Year
  Sex: Male

DRUGS (3)
  1. COZAAR [Concomitant]
  2. COUMADIN [Concomitant]
  3. COREG [Suspect]
     Indication: CARDIAC FAILURE CONGESTIVE
     Dosage: 50MG TWICE PER DAY
     Route: 048
     Dates: start: 19990101

REACTIONS (1)
  - OVERDOSE [None]
